FAERS Safety Report 5265151-0 (Version None)
Quarter: 2007Q1

REPORT INFORMATION
  Report Type: 
  Country: None (occurrence: None)
  Receive Date: 20061121
  Receipt Date: 20061005
  Transmission Date: 20070707
  Serious: No
  Sender: FDA-Public Use
  Company Number: TPA2006A01738

PATIENT
  Age: 69 Year
  Sex: Female
  Weight: 87.5442 kg

DRUGS (9)
  1. ROZEREM [Suspect]
     Dosage: PER ORAL
     Route: 048
  2. ASTELIN [Concomitant]
  3. BENICAR [Concomitant]
  4. PAXIL [Concomitant]
  5. PANTOPRAZOLE SODIUM [Concomitant]
  6. VITAMIN B12 [Concomitant]
  7. CALCIUM (CALCIUM) [Concomitant]
  8. METOPROLOL SUCCINATE [Concomitant]
  9. LOVASTATIN [Concomitant]

REACTIONS (1)
  - DRUG INEFFECTIVE [None]
